FAERS Safety Report 25355176 (Version 1)
Quarter: 2025Q2

REPORT INFORMATION
  Report Type: Spontaneous
  Country: JP (occurrence: JP)
  Receive Date: 20250524
  Receipt Date: 20250524
  Transmission Date: 20250717
  Serious: Yes (Death, Other)
  Sender: MERCK SHARP & DOHME LLC
  Company Number: JP-009507513-2287980

PATIENT
  Age: 74 Year
  Sex: Female
  Weight: 48.1 kg

DRUGS (2)
  1. PEMBROLIZUMAB [Suspect]
     Active Substance: PEMBROLIZUMAB
     Indication: Lung neoplasm malignant
  2. PEMBROLIZUMAB [Suspect]
     Active Substance: PEMBROLIZUMAB
     Indication: Lung neoplasm malignant

REACTIONS (7)
  - Death [Fatal]
  - Type 1 diabetes mellitus [Unknown]
  - Pneumonia [Unknown]
  - Pulmonary oedema [Unknown]
  - Immune-mediated myasthenia gravis [Unknown]
  - Malignant neoplasm progression [Unknown]
  - Abdominal wall haematoma [Unknown]
